FAERS Safety Report 15260966 (Version 1)
Quarter: 2018Q3

REPORT INFORMATION
  Report Type: Spontaneous
  Country: US (occurrence: US)
  Receive Date: 20180719
  Receipt Date: 20180719
  Transmission Date: 20181010
  Serious: Yes (Disabling)
  Sender: FDA-Public Use
  Company Number: None

PATIENT
  Age: 64 Year
  Sex: Male
  Weight: 108.86 kg

DRUGS (3)
  1. AMLODIPINE [Concomitant]
     Active Substance: AMLODIPINE BESYLATE
  2. VALSARTAN. [Suspect]
     Active Substance: VALSARTAN
     Indication: BLOOD PRESSURE MEASUREMENT
     Route: 048
  3. SIMVASTATIN. [Concomitant]
     Active Substance: SIMVASTATIN

REACTIONS (4)
  - Dizziness [None]
  - Retching [None]
  - Muscle spasms [None]
  - Nausea [None]
